FAERS Safety Report 10882590 (Version 1)
Quarter: 2015Q1

REPORT INFORMATION
  Report Type: Spontaneous
  Country: US (occurrence: None)
  Receive Date: 20150226
  Receipt Date: 20150226
  Transmission Date: 20150721
  Serious: Yes (Hospitalization, Other)
  Sender: FDA-Public Use
  Company Number: CO-KP-US-2015-004

PATIENT
  Age: 60 Year
  Sex: Female

DRUGS (3)
  1. CLONIDINE. [Suspect]
     Active Substance: CLONIDINE
     Indication: HYPERTENSION
  2. AMITRIPTYLINE [Suspect]
     Active Substance: AMITRIPTYLINE
     Indication: DEPRESSION
  3. METOPROLOL (METOPROLOL) [Concomitant]
     Active Substance: METOPROLOL

REACTIONS (12)
  - Encephalomalacia [None]
  - Lacunar infarction [None]
  - Loss of consciousness [None]
  - Hypertensive crisis [None]
  - Hallucination [None]
  - Cerebellar atrophy [None]
  - Head injury [None]
  - Cerebral atrophy [None]
  - Drug abuse [None]
  - Drug dependence [None]
  - Refusal of treatment by patient [None]
  - Acute kidney injury [None]
